FAERS Safety Report 9523038 (Version 2)
Quarter: 2013Q3

REPORT INFORMATION
  Report Type: Spontaneous
  Country: US (occurrence: US)
  Receive Date: 20130913
  Receipt Date: 20130920
  Transmission Date: 20140515
  Serious: Yes (Other)
  Sender: FDA-Public Use
  Company Number: CHPA2013US014009

PATIENT
  Age: 25 Year
  Sex: Female

DRUGS (1)
  1. TRANSDERM SCOP [Suspect]
     Indication: MOTION SICKNESS
     Dosage: UNK, UNK
     Route: 062

REACTIONS (4)
  - Convulsion [Recovered/Resolved]
  - Tongue biting [Recovered/Resolved]
  - Dyspnoea [Recovered/Resolved]
  - Speech disorder [Recovered/Resolved]
